FAERS Safety Report 9263024 (Version 4)
Quarter: 2013Q2

REPORT INFORMATION
  Report Type: Spontaneous
  Country: JP (occurrence: None)
  Receive Date: 20130426
  Receipt Date: 20130618
  Transmission Date: 20140414
  Serious: Yes (Other)
  Sender: FDA-Public Use
  Company Number: JP-20130027

PATIENT
  Age: 62 Year
  Sex: Female

DRUGS (4)
  1. LIPIODOL ULTRA FLUIDE [Suspect]
     Indication: THERAPEUTIC EMBOLISATION
     Route: 013
     Dates: start: 20090716, end: 20090716
  2. CISPLATIN [Suspect]
     Indication: THERAPEUTIC EMBOLISATION
     Route: 013
     Dates: start: 20090716, end: 20090716
  3. GELPART [Suspect]
     Indication: THERAPEUTIC EMBOLISATION
     Route: 013
     Dates: start: 20090716, end: 20090716
  4. GEMZAR (GEMCITABINE HYDROCHLORIDE) [Suspect]
     Indication: CHEMOTHERAPY
     Dosage: INTRAVENOUS (NOT OTHERWISE SPECIFIED)
     Dates: start: 200905, end: 201010

REACTIONS (5)
  - Thrombocytopenia [None]
  - Leukopenia [None]
  - Pain [None]
  - Off label use [None]
  - Hepatic function abnormal [None]
